FAERS Safety Report 15717410 (Version 2)
Quarter: 2019Q1

REPORT INFORMATION
  Report Type: Spontaneous
  Country: US (occurrence: US)
  Receive Date: 20181213
  Receipt Date: 20190123
  Transmission Date: 20190417
  Serious: Yes (Other)
  Sender: FDA-Public Use
  Company Number: US-AUROBINDO-AUR-APL-2018-058356

PATIENT
  Age: 3 Month
  Sex: Female
  Weight: 5.4 kg

DRUGS (3)
  1. MULTIVITAMIN                       /00097801/ [Concomitant]
     Active Substance: VITAMINS
     Indication: PRODUCT USED FOR UNKNOWN INDICATION
  2. VITAMIN B [Concomitant]
     Active Substance: VITAMIN B
     Indication: PRODUCT USED FOR UNKNOWN INDICATION
  3. AMOXICILLIN TABLETS USP 875 MG [Suspect]
     Active Substance: AMOXICILLIN
     Indication: STREPTOCOCCAL URINARY TRACT INFECTION
     Dosage: 875 MILLIGRAM, TWO TIMES A DAY
     Route: 048
     Dates: start: 20181126

REACTIONS (4)
  - Enterocolitis [Recovered/Resolved]
  - Exposure via breast milk [Recovered/Resolved]
  - Haematochezia [Recovered/Resolved]
  - Eye swelling [Recovered/Resolved]
